FAERS Safety Report 8837916 (Version 1)
Quarter: 2012Q4

REPORT INFORMATION
  Report Type: 
  Country: US (occurrence: US)
  Receive Date: 20121012
  Receipt Date: 20121012
  Transmission Date: 20130627
  Serious: Yes (Other)
  Sender: FDA-Public Use
  Company Number: US-ROCHE-1134846

PATIENT
  Age: 83 Year
  Sex: Female

DRUGS (13)
  1. RITUXAN [Suspect]
     Indication: LYMPHOMA
     Route: 065
     Dates: start: 19991110
  2. RITUXAN [Suspect]
     Indication: OFF LABEL USE
     Route: 065
     Dates: start: 20001106
  3. RITUXAN [Suspect]
     Route: 065
     Dates: start: 20001113
  4. RITUXAN [Suspect]
     Route: 065
     Dates: start: 20001128
  5. RITUXAN [Suspect]
     Route: 065
     Dates: start: 20010522
  6. RITUXAN [Suspect]
     Route: 065
     Dates: start: 20120122
  7. RITUXAN [Suspect]
     Route: 065
     Dates: start: 19991222
  8. RITUXAN [Suspect]
     Route: 065
     Dates: start: 19991229
  9. BENADRYL [Concomitant]
     Dosage: 20 / 50
     Route: 065
     Dates: start: 20001030
  10. BENADRYL [Concomitant]
     Dosage: 20 / 50
     Route: 065
     Dates: start: 20001106
  11. BENADRYL [Concomitant]
     Dosage: 30 / 50
     Route: 065
     Dates: start: 20001113
  12. BENADRYL [Concomitant]
     Dosage: 30 / 50
     Route: 065
     Dates: start: 20001128
  13. BENADRYL [Concomitant]
     Route: 065
     Dates: start: 20010522

REACTIONS (5)
  - Dehydration [Unknown]
  - Disease progression [Unknown]
  - Weight decreased [Unknown]
  - Fatigue [Unknown]
  - Orthostatic hypotension [Unknown]
